FAERS Safety Report 24703313 (Version 1)
Quarter: 2024Q4

REPORT INFORMATION
  Report Type: Report from Study
  Country: DE (occurrence: DE)
  Receive Date: 20241205
  Receipt Date: 20241205
  Transmission Date: 20250115
  Serious: Yes (Hospitalization)
  Sender: ABBVIE
  Company Number: DE-ABBVIE-6027965

PATIENT
  Age: 85 Year
  Sex: Male

DRUGS (2)
  1. FOSCARBIDOPA\FOSLEVODOPA [Suspect]
     Active Substance: FOSCARBIDOPA\FOSLEVODOPA
     Indication: Parkinson^s disease
     Dosage: 7-22 HOURS 0.48 ML/H; 22-7 HOURS 0.33 ML/H
     Route: 058
     Dates: start: 20240730
  2. FOSCARBIDOPA\FOSLEVODOPA [Suspect]
     Active Substance: FOSCARBIDOPA\FOSLEVODOPA
     Route: 058
     Dates: start: 202406, end: 202407

REACTIONS (7)
  - Carpal tunnel syndrome [Recovering/Resolving]
  - Infusion site abscess [Recovering/Resolving]
  - Fall [Not Recovered/Not Resolved]
  - Speech disorder [Unknown]
  - Salivary hypersecretion [Unknown]
  - Hypoaesthesia [Unknown]
  - Urinary tract infection [Recovering/Resolving]

NARRATIVE: CASE EVENT DATE: 20240101
